FAERS Safety Report 10080178 (Version 1)
Quarter: 2014Q2

REPORT INFORMATION
  Report Type: Spontaneous
  Country: US (occurrence: US)
  Receive Date: 20140415
  Receipt Date: 20140415
  Transmission Date: 20141212
  Serious: No
  Sender: FDA-Public Use
  Company Number: US-ALEXION-A201401268

PATIENT
  Sex: 0

DRUGS (7)
  1. SOLIRIS 300MG [Suspect]
     Indication: IMMUNE TOLERANCE INDUCTION
     Dosage: 1200 MG, SINGLE
     Route: 042
  2. SOLIRIS 300MG [Suspect]
     Indication: OFF LABEL USE
     Dosage: 600 MG, QW
     Route: 042
  3. SOLIRIS 300MG [Suspect]
     Dosage: 1200 MG, Q2W
     Route: 042
  4. ANTITHYMOCYTE IMMUNOGLOBULIN [Concomitant]
     Indication: PRODUCT USED FOR UNKNOWN INDICATION
     Dosage: UNK
     Route: 065
  5. TACROLIMUS [Concomitant]
     Indication: PRODUCT USED FOR UNKNOWN INDICATION
     Dosage: UNK
     Route: 065
  6. MYCOPHENOLATE MOFETIL [Concomitant]
     Indication: PRODUCT USED FOR UNKNOWN INDICATION
     Dosage: UNK
     Route: 065
  7. PREDNISONE [Concomitant]
     Indication: PRODUCT USED FOR UNKNOWN INDICATION
     Dosage: UNK
     Route: 065

REACTIONS (2)
  - Wound infection [Unknown]
  - Off label use [Unknown]
